FAERS Safety Report 6765174-6 (Version None)
Quarter: 2010Q2

REPORT INFORMATION
  Report Type: 
  Country: None (occurrence: None)
  Receive Date: 20100610
  Receipt Date: 20100610
  Transmission Date: 20101027
  Serious: Yes (Hospitalization)
  Sender: FDA-Public Use
  Company Number: None

PATIENT
  Sex: Male
  Weight: 863.6 kg

DRUGS (1)
  1. LEVEMIR [Suspect]
     Indication: DIABETES MELLITUS
     Dosage: 10 UNITS ONCE AT NIGHT LEVEMIR
     Dates: start: 20100527, end: 20100602

REACTIONS (3)
  - HYPERSENSITIVITY [None]
  - INJECTION SITE RASH [None]
  - RASH MACULAR [None]
